FAERS Safety Report 17429042 (Version 1)
Quarter: 2020Q1

REPORT INFORMATION
  Report Type: Spontaneous
  Country: US (occurrence: US)
  Receive Date: 20200218
  Receipt Date: 20200218
  Transmission Date: 20200409
  Serious: Yes (Other)
  Sender: FDA-Public Use
  Company Number: US-REGENERON PHARMACEUTICALS, INC.-2020-19137

PATIENT

DRUGS (1)
  1. EYLEA [Suspect]
     Active Substance: AFLIBERCEPT
     Indication: NEOVASCULAR AGE-RELATED MACULAR DEGENERATION
     Dosage: 2 MG, UNK
     Route: 031
     Dates: start: 20200120, end: 20200120

REACTIONS (3)
  - Retinal pigment epithelial tear [Unknown]
  - Vitrectomy [Unknown]
  - Retinal tear [Unknown]

NARRATIVE: CASE EVENT DATE: 20200121
